FAERS Safety Report 13355762 (Version 1)
Quarter: 2017Q1

REPORT INFORMATION
  Report Type: Spontaneous
  Country: ES (occurrence: ES)
  Receive Date: 20170321
  Receipt Date: 20170321
  Transmission Date: 20170429
  Serious: Yes (Hospitalization)
  Sender: FDA-Public Use
  Company Number: ES-JNJFOC-20170316940

PATIENT
  Sex: Male

DRUGS (7)
  1. ZYPREXA [Concomitant]
     Active Substance: OLANZAPINE
     Indication: SCHIZOPHRENIA
     Dosage: 20 (UNSPECIFIED UNITS)/DAY
     Route: 065
  2. SYCREST [Concomitant]
     Active Substance: ASENAPINE MALEATE
     Indication: SCHIZOPHRENIA
     Dosage: 10 (UNSPECIFIED UNITS)/DAY
     Route: 065
  3. INVEGA [Suspect]
     Active Substance: PALIPERIDONE
     Indication: SCHIZOPHRENIA
     Route: 048
  4. DORMODOR [Suspect]
     Active Substance: FLURAZEPAM HYDROCHLORIDE
     Indication: SCHIZOPHRENIA
     Dosage: 20 (UNSPECIFIED UNITS)/DAY
     Route: 065
  5. TRANXILIUM [Suspect]
     Active Substance: CLORAZEPATE DIPOTASSIUM
     Indication: SCHIZOPHRENIA
     Dosage: 150 (UNSPECIFIED UNITS)/DAY
     Route: 065
  6. VALIUM [Suspect]
     Active Substance: DIAZEPAM
     Indication: SCHIZOPHRENIA
     Dosage: 20 (UNSPECIFIED UNITS)/DAY
     Route: 065
  7. STILNOX [Concomitant]
     Active Substance: ZOLPIDEM TARTRATE
     Indication: SCHIZOPHRENIA
     Dosage: 20 (UNSPECIFIED UNITS)/DAY
     Route: 065

REACTIONS (1)
  - Drug dependence [Unknown]
